FAERS Safety Report 7476160-5 (Version None)
Quarter: 2011Q2

REPORT INFORMATION
  Report Type: 
  Country: None (occurrence: None)
  Receive Date: 20110512
  Receipt Date: 20110503
  Transmission Date: 20111010
  Serious: Yes (Other)
  Sender: FDA-Public Use
  Company Number: NL-ABBOTT-11P-114-0703889-00

PATIENT
  Sex: Male
  Weight: 68 kg

DRUGS (4)
  1. HUMIRA [Suspect]
     Indication: PSORIASIS
     Route: 058
     Dates: start: 20091214
  2. DOVOBET [Concomitant]
     Indication: PSORIASIS
  3. SILKIS [Concomitant]
     Indication: PSORIASIS
  4. ETANERCEPT [Concomitant]
     Indication: PSORIASIS
     Dates: start: 20100427, end: 20110106

REACTIONS (1)
  - MYCOBACTERIUM MARINUM INFECTION [None]
